FAERS Safety Report 5836418-X (Version None)
Quarter: 2008Q3

REPORT INFORMATION
  Report Type: 
  Country: None (occurrence: None)
  Receive Date: 20080806
  Receipt Date: 20080806
  Transmission Date: 20090109
  Serious: Yes (Hospitalization)
  Sender: FDA-Public Use
  Company Number: None

PATIENT
  Age: 64 Year
  Sex: Female
  Weight: 57.5 kg

DRUGS (15)
  1. SORAFENIB (PROVIDED BY STUDY) [Suspect]
     Indication: MALIGNANT HEPATOBILIARY NEOPLASM
     Dosage: 200MG BID ORAL
     Route: 048
     Dates: start: 20080710, end: 20080717
  2. OXALIPLATIN [Suspect]
     Indication: MALIGNANT HEPATOBILIARY NEOPLASM
     Dosage: IV 136MG
     Route: 042
     Dates: start: 20080710
  3. XELODA [Suspect]
     Indication: MALIGNANT HEPATOBILIARY NEOPLASM
     Dosage: 3600MG Q6H X 8
     Dates: start: 20080710, end: 20080712
  4. RANITIDINE HCL [Concomitant]
  5. PREDNISONE [Concomitant]
  6. OXYCONTIN [Concomitant]
  7. OXYCODONE HCL [Concomitant]
  8. WARFARIN SODIUM [Concomitant]
  9. AMBIEN [Concomitant]
  10. PHENERGAN HCL [Concomitant]
  11. LORAZEPAM [Concomitant]
  12. ONADANSETRON [Concomitant]
  13. INDERAL LA [Concomitant]
  14. MAALIDOBEN [Concomitant]
  15. DIFLUCAN [Concomitant]

REACTIONS (11)
  - ABDOMINAL PAIN UPPER [None]
  - CATHETER SITE CELLULITIS [None]
  - CULTURE WOUND POSITIVE [None]
  - DEHYDRATION [None]
  - GLOSSODYNIA [None]
  - INCORRECT DOSE ADMINISTERED [None]
  - ORAL CANDIDIASIS [None]
  - ORAL PAIN [None]
  - SKIN CANDIDA [None]
  - STOMATITIS [None]
  - TONGUE DISORDER [None]
